FAERS Safety Report 7476460-9 (Version None)
Quarter: 2011Q2

REPORT INFORMATION
  Report Type: 
  Country: None (occurrence: None)
  Receive Date: 20110512
  Receipt Date: 20110506
  Transmission Date: 20111010
  Serious: Yes (Hospitalization)
  Sender: FDA-Public Use
  Company Number: PT-AMGEN-PRTCT2010004395

PATIENT
  Age: 86 Year
  Sex: Female

DRUGS (5)
  1. FERROUS SULFATE TAB [Concomitant]
  2. DARBEPOETIN ALFA [Suspect]
     Indication: RENAL FAILURE CHRONIC
     Dosage: 30 A?G, QMO
     Route: 058
     Dates: start: 20090407, end: 20100607
  3. METHYLDOPA [Concomitant]
  4. ALLOPURINOL [Concomitant]
  5. CANDESARTAN [Concomitant]

REACTIONS (1)
  - GASTRIC CANCER [None]
